FAERS Safety Report 21661489 (Version 2)
Quarter: 2023Q1

REPORT INFORMATION
  Report Type: Report from Study
  Country: US (occurrence: US)
  Receive Date: 20221130
  Receipt Date: 20230104
  Transmission Date: 20230418
  Serious: No
  Sender: FDA-Public Use
  Company Number: US-ABBVIE-22K-163-4473333-00

PATIENT
  Sex: Male

DRUGS (5)
  1. VENCLEXTA [Suspect]
     Active Substance: VENETOCLAX
     Indication: Chronic lymphocytic leukaemia
     Route: 048
  2. VENCLEXTA [Suspect]
     Active Substance: VENETOCLAX
     Indication: Chronic lymphocytic leukaemia
     Route: 048
  3. VENCLEXTA [Suspect]
     Active Substance: VENETOCLAX
     Indication: Chronic lymphocytic leukaemia
     Route: 048
  4. PFIZER-BIONTECH COVID-19 VACCINE [Concomitant]
     Active Substance: TOZINAMERAN
     Indication: COVID-19 immunisation
     Dosage: ONE IN ONCE
     Route: 030
  5. PFIZER-BIONTECH COVID-19 VACCINE [Concomitant]
     Active Substance: TOZINAMERAN
     Indication: COVID-19 immunisation
     Dosage: BOOSTER DOSE, ONE IN ONCE
     Route: 030
     Dates: start: 20220601, end: 20220601

REACTIONS (16)
  - Back pain [Not Recovered/Not Resolved]
  - Joint stiffness [Not Recovered/Not Resolved]
  - Arthralgia [Not Recovered/Not Resolved]
  - Joint stiffness [Not Recovered/Not Resolved]
  - Arthropathy [Not Recovered/Not Resolved]
  - Constipation [Not Recovered/Not Resolved]
  - Faeces hard [Recovering/Resolving]
  - Peripheral swelling [Recovered/Resolved]
  - Dizziness postural [Not Recovered/Not Resolved]
  - Joint swelling [Recovered/Resolved]
  - Dizziness postural [Recovering/Resolving]
  - Thirst [Not Recovered/Not Resolved]
  - Haematochezia [Recovered/Resolved]
  - White blood cell count decreased [Recovering/Resolving]
  - Fatigue [Recovered/Resolved]
  - Gait disturbance [Not Recovered/Not Resolved]
